FAERS Safety Report 6512770-7 (Version None)
Quarter: 2009Q4

REPORT INFORMATION
  Report Type: 
  Country: None (occurrence: None)
  Receive Date: 20091217
  Receipt Date: 20091201
  Transmission Date: 20100525
  Serious: Yes (Hospitalization)
  Sender: FDA-Public Use
  Company Number: AE-2008-065

PATIENT
  Age: 84 Year
  Sex: Female
  Weight: 58 kg

DRUGS (6)
  1. METOPROLOL TARTRATE [Suspect]
     Indication: HYPERTENSION
     Dosage: 12.5 MG, QD, ORAL
     Route: 048
     Dates: end: 20020210
  2. RAMIPRIL [Suspect]
     Indication: HYPERTENSION
     Dosage: 2.5 MG, QD, ORAL
     Route: 048
  3. PENTAERYTHRITOL TETRANITRATE [Suspect]
     Indication: ANGINA PECTORIS
     Dosage: 40 MG, BID, ORAL
     Route: 048
  4. PIRACETAM [Suspect]
     Indication: DEMENTIA
     Dosage: 1200 MG, BID, ORAL
     Route: 048
  5. GLIBENCLAMIDE [Concomitant]
  6. ACARBOSE [Concomitant]

REACTIONS (1)
  - SYNCOPE [None]
